FAERS Safety Report 11615311 (Version 1)
Quarter: 2015Q4

REPORT INFORMATION
  Report Type: Spontaneous
  Country: US (occurrence: None)
  Receive Date: 20151008
  Receipt Date: 20151008
  Transmission Date: 20160304
  Serious: No
  Sender: FDA-Public Use
  Company Number: None

PATIENT
  Age: 59 Year
  Sex: Female
  Weight: 83.92 kg

DRUGS (3)
  1. DULOXETINE HCL 60 MG TORRENT PH [Suspect]
     Active Substance: DULOXETINE HYDROCHLORIDE
     Indication: BACK PAIN
     Dosage: TAKEN BY MOUTH PILLS
  2. DULOXETINE HCL 60 MG TORRENT PH [Suspect]
     Active Substance: DULOXETINE HYDROCHLORIDE
     Indication: FIBROMYALGIA
     Dosage: TAKEN BY MOUTH PILLS
  3. TIZANIDINE. [Concomitant]
     Active Substance: TIZANIDINE

REACTIONS (11)
  - Retinal tear [None]
  - Ankle fracture [None]
  - Blood pressure increased [None]
  - Drug withdrawal syndrome [None]
  - Foot fracture [None]
  - Fall [None]
  - Nasopharyngitis [None]
  - Feeling of despair [None]
  - Nervousness [None]
  - Muscle spasms [None]
  - Hyperhidrosis [None]
